FAERS Safety Report 16227747 (Version 2)
Quarter: 2019Q2

REPORT INFORMATION
  Report Type: Spontaneous
  Country: US (occurrence: US)
  Receive Date: 20190423
  Receipt Date: 20190501
  Transmission Date: 20190711
  Serious: No
  Sender: FDA-Public Use
  Company Number: US-PFIZER INC-2019170136

PATIENT
  Age: 43 Year
  Sex: Female
  Weight: 63.5 kg

DRUGS (1)
  1. GABAPENTIN. [Suspect]
     Active Substance: GABAPENTIN
     Indication: NEUROPATHY PERIPHERAL
     Dosage: 300 MG, 3X/DAY
     Route: 048

REACTIONS (3)
  - Product use in unapproved indication [Unknown]
  - Pre-existing condition improved [Unknown]
  - Therapeutic response unexpected [Unknown]
